FAERS Safety Report 22241022 (Version 2)
Quarter: 2023Q2

REPORT INFORMATION
  Report Type: Spontaneous
  Country: US (occurrence: US)
  Receive Date: 20230421
  Receipt Date: 20230425
  Transmission Date: 20230722
  Serious: No
  Sender: FDA-Public Use
  Company Number: US-BRISTOL-MYERS SQUIBB COMPANY-2023-057381

PATIENT
  Age: 83 Year
  Sex: Female
  Weight: 160 kg

DRUGS (1)
  1. REVLIMID [Suspect]
     Active Substance: LENALIDOMIDE
     Indication: B-cell lymphoma
     Dosage: FREQUENCY- 11
     Dates: start: 20230120

REACTIONS (3)
  - Rash [Unknown]
  - Off label use [Unknown]
  - Herpes zoster [Unknown]

NARRATIVE: CASE EVENT DATE: 20230413
